FAERS Safety Report 25607105 (Version 1)
Quarter: 2025Q3

REPORT INFORMATION
  Report Type: Spontaneous
  Country: CN (occurrence: CN)
  Receive Date: 20250725
  Receipt Date: 20250725
  Transmission Date: 20251020
  Serious: Yes (Hospitalization, Disabling, Other)
  Sender: ABBVIE
  Company Number: CN-ABBVIE-6385511

PATIENT
  Age: 66 Year
  Sex: Male
  Weight: 64 kg

DRUGS (3)
  1. VENETOCLAX [Suspect]
     Active Substance: VENETOCLAX
     Indication: Acute myeloid leukaemia
     Route: 048
     Dates: start: 20250626, end: 20250716
  2. AZACITIDINE [Suspect]
     Active Substance: AZACITIDINE
     Indication: Acute myeloid leukaemia
     Route: 058
     Dates: start: 20250626, end: 20250702
  3. GRANULOCYTE COLONY-STIMULATING FACTOR NOS [Concomitant]
     Active Substance: GRANULOCYTE COLONY-STIMULATING FACTOR NOS
     Indication: Prophylaxis
     Route: 058
     Dates: start: 20250626, end: 20250702

REACTIONS (2)
  - Myelosuppression [Recovering/Resolving]
  - Acute myeloid leukaemia [Unknown]

NARRATIVE: CASE EVENT DATE: 20250101
